FAERS Safety Report 23158717 (Version 2)
Quarter: 2023Q4

REPORT INFORMATION
  Report Type: Report from Study
  Country: FR (occurrence: FR)
  Receive Date: 20231108
  Receipt Date: 20231114
  Transmission Date: 20240110
  Serious: Yes (Other)
  Sender: FDA-Public Use
  Company Number: FR-ASTELLAS-2023US033498

PATIENT
  Age: 75 Year
  Sex: Male

DRUGS (2)
  1. ENFORTUMAB VEDOTIN [Suspect]
     Active Substance: ENFORTUMAB VEDOTIN
     Indication: Transitional cell carcinoma
     Dosage: 98 MG, CYCLIC (CYCLE 1 DAY 1)
     Route: 065
     Dates: start: 20230523
  2. ENFORTUMAB VEDOTIN [Suspect]
     Active Substance: ENFORTUMAB VEDOTIN
     Dosage: 98 MG, CYCLIC (CYCLE 1 DAY 8) (LAST INJECTION)
     Route: 065
     Dates: start: 20230530

REACTIONS (1)
  - Skin toxicity [Recovered/Resolved]
